FAERS Safety Report 4849976-9 (Version None)
Quarter: 2005Q4

REPORT INFORMATION
  Report Type: 
  Country: None (occurrence: None)
  Receive Date: 20051123
  Receipt Date: 20050210
  Transmission Date: 20060501
  Serious: Yes (Other)
  Sender: FDA-Public Use
  Company Number: 2005028185

PATIENT
  Age: 60 Year
  Sex: Female
  Weight: 65.7716 kg

DRUGS (4)
  1. LIPITOR [Suspect]
     Indication: BLOOD CHOLESTEROL INCREASED
     Dosage: 40 MG (1 IN 1 D), ORAL
     Route: 048
     Dates: start: 20040101, end: 20050101
  2. FISH OIL (FISH OIL) [Suspect]
     Indication: BLOOD TRIGLYCERIDES
     Dosage: ORAL
     Route: 048
     Dates: start: 20040101, end: 20050101
  3. ESTROGENS SOL/INJ [Suspect]
     Indication: ILL-DEFINED DISORDER
  4. TOPIRAMATE [Concomitant]

REACTIONS (4)
  - CRYING [None]
  - HEPATIC ENZYME INCREASED [None]
  - HOT FLUSH [None]
  - MOOD SWINGS [None]
